FAERS Safety Report 18700536 (Version 1)
Quarter: 2021Q1

REPORT INFORMATION
  Report Type: Spontaneous
  Country: DE (occurrence: DE)
  Receive Date: 20210105
  Receipt Date: 20210105
  Transmission Date: 20210419
  Serious: Yes (Life-Threatening, Hospitalization)
  Sender: FDA-Public Use
  Company Number: DE-TEVA-2020-DE-1865343

PATIENT
  Age: 79 Year
  Sex: Male

DRUGS (5)
  1. AZATHIOPRINE. [Suspect]
     Active Substance: AZATHIOPRINE
     Indication: AORTITIS
     Route: 065
  2. MITOMYCIN. [Suspect]
     Active Substance: MITOMYCIN
     Indication: BLADDER TRANSITIONAL CELL CARCINOMA
     Route: 065
  3. 6?MERCAPTOPURINE [Suspect]
     Active Substance: MERCAPTOPURINE
     Indication: AORTITIS
     Route: 065
  4. CYCLOPHOSPHAMIDE. [Suspect]
     Active Substance: CYCLOPHOSPHAMIDE
     Indication: AORTITIS
     Route: 042
  5. 5?FLUOROURACIL [Suspect]
     Active Substance: FLUOROURACIL
     Indication: BLADDER TRANSITIONAL CELL CARCINOMA
     Route: 065

REACTIONS (3)
  - Pulmonary alveolar haemorrhage [Unknown]
  - Interstitial lung disease [Unknown]
  - COVID-19 [Unknown]
